FAERS Safety Report 9861795 (Version 2)
Quarter: 2014Q2

REPORT INFORMATION
  Report Type: Spontaneous
  Country: SE (occurrence: SE)
  Receive Date: 20140203
  Receipt Date: 20140428
  Transmission Date: 20141212
  Serious: Yes (Other)
  Sender: FDA-Public Use
  Company Number: SE-ACCORD-021516

PATIENT
  Age: 69 Year
  Sex: Female
  Weight: 57 kg

DRUGS (3)
  1. ACCORD LETROZOLE [Suspect]
     Indication: BREAST CANCER
     Dates: start: 20130226, end: 20130814
  2. PROGYNON [Concomitant]
  3. APROVEL [Concomitant]
     Indication: HYPERTENSION

REACTIONS (4)
  - Retinal oedema [Not Recovered/Not Resolved]
  - Dry eye [Not Recovered/Not Resolved]
  - Trigger finger [Not Recovered/Not Resolved]
  - Metamorphopsia [Not Recovered/Not Resolved]
